FAERS Safety Report 17911410 (Version 1)
Quarter: 2020Q2

REPORT INFORMATION
  Report Type: Spontaneous
  Country: US (occurrence: US)
  Receive Date: 20200617
  Receipt Date: 20200617
  Transmission Date: 20200714
  Serious: No
  Sender: FDA-Public Use
  Company Number: None

PATIENT
  Age: 91 Year
  Sex: Male

DRUGS (1)
  1. MIRALAX [Suspect]
     Active Substance: POLYETHYLENE GLYCOL 3350

REACTIONS (15)
  - Polymyalgia rheumatica [None]
  - Melaena [None]
  - Haemorrhoids [None]
  - Gait disturbance [None]
  - Peritonitis [None]
  - Diverticulitis [None]
  - Diverticulum [None]
  - Faeces discoloured [None]
  - Product use complaint [None]
  - Rectal haemorrhage [None]
  - Product label issue [None]
  - Incorrect product administration duration [None]
  - Temporal arteritis [None]
  - Anaemia [None]
  - Asthenia [None]
